FAERS Safety Report 5793022-X (Version None)
Quarter: 2008Q2

REPORT INFORMATION
  Report Type: 
  Country: None (occurrence: None)
  Receive Date: 20080627
  Receipt Date: 20080612
  Transmission Date: 20081010
  Serious: Yes (Hospitalization)
  Sender: FDA-Public Use
  Company Number: PHHY2008SG10476

PATIENT
  Age: 58 Year
  Sex: Male

DRUGS (5)
  1. TEGRETOL [Suspect]
     Indication: CONFUSIONAL STATE
     Dosage: 400 MG
     Route: 048
     Dates: start: 20031120
  2. TEGRETOL [Suspect]
     Indication: ABNORMAL BEHAVIOUR
  3. LACTULOSE [Concomitant]
     Dosage: 30 ML
     Route: 048
  4. METFORMIN HCL [Concomitant]
     Dosage: 750 MG
     Route: 048
  5. TOLBUTAMIDE [Concomitant]
     Dosage: 1500 MG
     Route: 048

REACTIONS (1)
  - STEVENS-JOHNSON SYNDROME [None]
